FAERS Safety Report 16706898 (Version 3)
Quarter: 2019Q3

REPORT INFORMATION
  Report Type: Spontaneous
  Country: US (occurrence: US)
  Receive Date: 20190815
  Receipt Date: 20190925
  Transmission Date: 20191004
  Serious: No
  Sender: FDA-Public Use
  Company Number: US-NEUROCRINE BIOSCIENCES INC.-2019NBI02199

PATIENT
  Sex: Male

DRUGS (16)
  1. INGREZZA [Suspect]
     Active Substance: VALBENAZINE
     Route: 048
     Dates: start: 20190608, end: 2019
  2. KEPPRA [Concomitant]
     Active Substance: LEVETIRACETAM
     Indication: SEIZURE
  3. LOW DOSE ASPIRIN [Concomitant]
     Active Substance: ASPIRIN
     Indication: CARDIAC DISORDER
  4. BUSPAR [Concomitant]
     Active Substance: BUSPIRONE HYDROCHLORIDE
     Indication: ANXIETY
  5. QUETIAPINE. [Concomitant]
     Active Substance: QUETIAPINE
     Indication: SLEEP DISORDER
  6. INGREZZA [Suspect]
     Active Substance: VALBENAZINE
     Indication: TARDIVE DYSKINESIA
     Route: 048
     Dates: start: 20190531, end: 20190607
  7. QUETIAPINE. [Concomitant]
     Active Substance: QUETIAPINE
     Indication: AFFECTIVE DISORDER
     Dosage: AT BEDTIME
  8. PROZAC [Concomitant]
     Active Substance: FLUOXETINE HYDROCHLORIDE
     Indication: DEPRESSION
  9. DONEPEZIL. [Concomitant]
     Active Substance: DONEPEZIL
     Indication: COGNITIVE DISORDER
  10. DEPAKOTE [Concomitant]
     Active Substance: DIVALPROEX SODIUM
     Indication: AFFECTIVE DISORDER
  11. MINIPRESS [Concomitant]
     Active Substance: PRAZOSIN HYDROCHLORIDE
     Indication: NIGHTMARE
     Dosage: AT BEDTIME
  12. GABAPENTIN. [Concomitant]
     Active Substance: GABAPENTIN
     Indication: ANXIETY
  13. GABAPENTIN. [Concomitant]
     Active Substance: GABAPENTIN
     Indication: NEUROPATHY PERIPHERAL
  14. IRON SUPPLEMENTS [Concomitant]
     Active Substance: IRON
     Indication: IRON DEFICIENCY ANAEMIA
     Dosage: TWO TABLETS THREE TIMES A WEEK
  15. INGREZZA [Suspect]
     Active Substance: VALBENAZINE
     Route: 048
     Dates: start: 2019, end: 2019
  16. VITAMIN D [Concomitant]
     Active Substance: VITAMIN D NOS
     Indication: VITAMIN D DEFICIENCY

REACTIONS (2)
  - Tardive dyskinesia [Unknown]
  - Adverse drug reaction [Unknown]

NARRATIVE: CASE EVENT DATE: 2019
